FAERS Safety Report 12879960 (Version 2)
Quarter: 2019Q2

REPORT INFORMATION
  Report Type: Spontaneous
  Country: US (occurrence: US)
  Receive Date: 20161025
  Receipt Date: 20190522
  Transmission Date: 20190711
  Serious: No
  Sender: FDA-Public Use
  Company Number: US-PFIZER INC-2016010075

PATIENT
  Age: 65 Year
  Sex: Female
  Weight: 41.73 kg

DRUGS (2)
  1. NEURONTIN [Suspect]
     Active Substance: GABAPENTIN
     Indication: VULVOVAGINAL PAIN
     Dosage: 1200 MG, UNK
  2. KLONOPIN [Concomitant]
     Active Substance: CLONAZEPAM
     Dosage: UNK

REACTIONS (3)
  - Drug ineffective for unapproved indication [Recovered/Resolved]
  - Off label use [Unknown]
  - Lethargy [Unknown]
